FAERS Safety Report 15352216 (Version 1)
Quarter: 2018Q3

REPORT INFORMATION
  Report Type: Spontaneous
  Country: IN (occurrence: IN)
  Receive Date: 20180829
  Receipt Date: 20180829
  Transmission Date: 20181010
  Serious: No
  Sender: FDA-Public Use
  Company Number: None

PATIENT
  Age: 48 Year
  Sex: Male
  Weight: 47 kg

DRUGS (5)
  1. ANTACIDS [Concomitant]
     Active Substance: UNSPECIFIED INGREDIENT
  2. JANUMET [Concomitant]
     Active Substance: METFORMIN HYDROCHLORIDE\SITAGLIPTIN PHOSPHATE
  3. RAMESTER [Concomitant]
  4. A TO Z VITAMIN [Concomitant]
  5. TRIBET 2 [Suspect]
     Active Substance: GLIMEPIRIDE\METFORMIN\PIOGLITAZONE
     Indication: DIABETES MELLITUS
     Route: 048

REACTIONS (7)
  - Bladder disorder [None]
  - Peripheral swelling [None]
  - Cardiac discomfort [None]
  - Flatulence [None]
  - Headache [None]
  - Dysuria [None]
  - Vomiting [None]
